FAERS Safety Report 16920476 (Version 2)
Quarter: 2019Q4

REPORT INFORMATION
  Report Type: Spontaneous
  Country: US (occurrence: US)
  Receive Date: 20191015
  Receipt Date: 20191104
  Transmission Date: 20200122
  Serious: No
  Sender: FDA-Public Use
  Company Number: US-BAUSCH-BL-2019-026113

PATIENT
  Sex: Female
  Weight: 108.96 kg

DRUGS (4)
  1. VIENA [Concomitant]
     Indication: PRODUCT USED FOR UNKNOWN INDICATION
     Route: 048
  2. LOTEMAX SM [Suspect]
     Active Substance: LOTEPREDNOL ETABONATE
     Dosage: VIA INTRAOCULAR ROUTE, SAMPLE BOTTLE
     Route: 047
     Dates: start: 2019
  3. LOTEMAX SM [Suspect]
     Active Substance: LOTEPREDNOL ETABONATE
     Indication: CORNEAL INFECTION
     Dosage: VIA INTRAOCULAR ROUTE, 1ST BOTTLE
     Route: 047
     Dates: start: 201907, end: 2019
  4. LOTEMAX SM [Suspect]
     Active Substance: LOTEPREDNOL ETABONATE
     Indication: PRODUCT USE IN UNAPPROVED INDICATION
     Dosage: VIA INTRAOCULAR ROUTE, 2ND BOTTLE
     Route: 047
     Dates: start: 2019, end: 2019

REACTIONS (4)
  - Product use in unapproved indication [Unknown]
  - Product quality issue [Unknown]
  - Eye irritation [Recovered/Resolved]
  - Drug effective for unapproved indication [Unknown]

NARRATIVE: CASE EVENT DATE: 2019
